FAERS Safety Report 10528966 (Version 1)
Quarter: 2014Q4

REPORT INFORMATION
  Report Type: Spontaneous
  Country: ES (occurrence: ES)
  Receive Date: 20141020
  Receipt Date: 20141020
  Transmission Date: 20150528
  Serious: Yes (Other)
  Sender: FDA-Public Use
  Company Number: ES-BAUSCH-BL-2014-007210

PATIENT
  Age: 85 Year
  Sex: Male

DRUGS (1)
  1. NITOMAN [Suspect]
     Active Substance: TETRABENAZINE
     Indication: PARKINSONISM
     Dosage: HALF TABLET AT BREAKFAST
     Route: 048
     Dates: start: 20140924, end: 20141001

REACTIONS (4)
  - Malaise [Unknown]
  - Walking disability [Unknown]
  - Off label use [Unknown]
  - Insomnia [Unknown]

NARRATIVE: CASE EVENT DATE: 201409
